FAERS Safety Report 5097584-X (Version None)
Quarter: 2006Q3

REPORT INFORMATION
  Report Type: 
  Country: None (occurrence: None)
  Receive Date: 20060901
  Receipt Date: 20060724
  Transmission Date: 20061208
  Serious: Yes (Hospitalization)
  Sender: FDA-Public Use
  Company Number: 20060155 /

PATIENT
  Age: 73 Year
  Sex: Female

DRUGS (1)
  1. VENOFER [Suspect]
     Indication: IRON DEFICIENCY
     Dosage: 300 MG INTRAVENOUS
     Route: 042

REACTIONS (1)
  - THROMBOPHLEBITIS [None]
